FAERS Safety Report 10933637 (Version 1)
Quarter: 2015Q1

REPORT INFORMATION
  Report Type: Spontaneous
  Country: NL (occurrence: None)
  Receive Date: 20150318
  Receipt Date: 20150318
  Transmission Date: 20150721
  Serious: Yes (Death, Hospitalization, Other)
  Sender: FDA-Public Use
  Company Number: NL-ZYDUS-007038

PATIENT
  Age: 34 Year
  Sex: Male

DRUGS (2)
  1. AZATHIOPRINE (AZATHIOPRINE) [Suspect]
     Active Substance: AZATHIOPRINE
     Indication: CROHN^S DISEASE
  2. SULFASALAZINE (SULFASALAZINE) [Suspect]
     Active Substance: SULFASALAZINE

REACTIONS (3)
  - Erythropoiesis abnormal [None]
  - Febrile neutropenia [None]
  - Pancytopenia [None]
